FAERS Safety Report 5640119-0 (Version None)
Quarter: 2008Q1

REPORT INFORMATION
  Report Type: 
  Country: None (occurrence: None)
  Receive Date: 20080226
  Receipt Date: 20080226
  Transmission Date: 20080703
  Serious: Yes (Death)
  Sender: FDA-Public Use
  Company Number: None

PATIENT
  Sex: Female
  Weight: 48.1 kg

DRUGS (2)
  1. INTEGRILIN [Suspect]
     Indication: ACUTE MYOCARDIAL INFARCTION
     Dosage: IV
     Route: 042
     Dates: start: 20071002, end: 20071003
  2. LOVENOX [Suspect]
     Indication: ACUTE MYOCARDIAL INFARCTION
     Dosage: 50MG Q12HOURS SQ
     Route: 058
     Dates: start: 20071002, end: 20071003

REACTIONS (6)
  - DEPRESSED LEVEL OF CONSCIOUSNESS [None]
  - FACIAL PALSY [None]
  - HAEMORRHAGE INTRACRANIAL [None]
  - INTRAVENTRICULAR HAEMORRHAGE [None]
  - NERVOUS SYSTEM DISORDER [None]
  - REFUSAL OF TREATMENT BY PATIENT [None]
